FAERS Safety Report 8992367 (Version 2)
Quarter: 2013Q1

REPORT INFORMATION
  Report Type: Spontaneous
  Country: US (occurrence: US)
  Receive Date: 20121231
  Receipt Date: 20130311
  Transmission Date: 20140127
  Serious: Yes (Other)
  Sender: FDA-Public Use
  Company Number: US-JNJFOC-20121209909

PATIENT
  Sex: Male
  Weight: 83.92 kg

DRUGS (4)
  1. ZYTIGA [Suspect]
     Indication: PROSTATE CANCER
     Dosage: 250 X 4
     Route: 048
     Dates: start: 2010
  2. PREDNISONE [Suspect]
     Indication: PROSTATE CANCER
     Dosage: 250 X 4
     Route: 048
     Dates: start: 2010
  3. PREDNISONE [Suspect]
     Indication: PROSTATE CANCER
     Dosage: 250 X 4
     Route: 048
  4. PRILOSEC [Concomitant]
     Indication: GASTROOESOPHAGEAL REFLUX DISEASE
     Route: 048

REACTIONS (6)
  - Diabetes mellitus [Not Recovered/Not Resolved]
  - Prostatic specific antigen increased [Not Recovered/Not Resolved]
  - Lymphadenopathy [Not Recovered/Not Resolved]
  - Bone pain [Not Recovered/Not Resolved]
  - Bone scan abnormal [Not Recovered/Not Resolved]
  - Intentional drug misuse [Unknown]
